FAERS Safety Report 5955552-7 (Version None)
Quarter: 2008Q4

REPORT INFORMATION
  Report Type: 
  Country: None (occurrence: None)
  Receive Date: 20081117
  Receipt Date: 20081009
  Transmission Date: 20090506
  Serious: Yes (Life-Threatening)
  Sender: FDA-Public Use
  Company Number: AU-BAXTER-2008BH012180

PATIENT
  Age: 78 Year
  Sex: Male
  Weight: 70 kg

DRUGS (6)
  1. GLYCINE 1.5% IN PLASTIC CONTAINER [Suspect]
     Indication: TRANSURETHRAL PROSTATECTOMY
     Dosage: DOSE UNIT:UNKNOWN
     Route: 043
     Dates: start: 20081008, end: 20081008
  2. MIDAZOLAM HCL [Suspect]
     Indication: DRUG USE FOR UNKNOWN INDICATION
     Dosage: DOSE UNIT:UNKNOWN
     Route: 065
     Dates: start: 20081008, end: 20081008
  3. LIDOCAINE [Suspect]
     Indication: DRUG USE FOR UNKNOWN INDICATION
     Dosage: DOSE UNIT:UNKNOWN
     Route: 065
     Dates: start: 20081008, end: 20081008
  4. BUPIVACAINE [Suspect]
     Indication: DRUG USE FOR UNKNOWN INDICATION
     Dosage: DOSE UNIT:UNKNOWN
     Route: 065
     Dates: start: 20081008, end: 20081008
  5. FENTANYL [Suspect]
     Indication: DRUG USE FOR UNKNOWN INDICATION
     Dosage: DOSE UNIT:UNKNOWN
     Route: 065
     Dates: start: 20081008, end: 20081008
  6. GENTAMYCIN SULFATE [Suspect]
     Indication: DRUG USE FOR UNKNOWN INDICATION
     Dosage: DOSE UNIT:UNKNOWN
     Route: 065
     Dates: start: 20081008, end: 20081008

REACTIONS (1)
  - ANAPHYLACTIC REACTION [None]
